FAERS Safety Report 15453636 (Version 2)
Quarter: 2018Q4

REPORT INFORMATION
  Report Type: Spontaneous
  Country: US (occurrence: US)
  Receive Date: 20181001
  Receipt Date: 20181015
  Transmission Date: 20190204
  Serious: No
  Sender: FDA-Public Use
  Company Number: US-SUNOVION-2018SUN003697

PATIENT
  Sex: Female
  Weight: 47.17 kg

DRUGS (2)
  1. IPRATROPIUM [Concomitant]
     Active Substance: IPRATROPIUM
     Dosage: UNKNOWN
     Route: 055
  2. LONHALA MAGNAIR [Suspect]
     Active Substance: GLYCOPYRROLATE
     Indication: CHRONIC OBSTRUCTIVE PULMONARY DISEASE
     Dosage: 25 ?G/ML, UNK
     Route: 055

REACTIONS (4)
  - Feeling hot [Unknown]
  - Urinary incontinence [Unknown]
  - Underdose [Unknown]
  - Dyspnoea [Unknown]
